FAERS Safety Report 13450225 (Version 6)
Quarter: 2017Q2

REPORT INFORMATION
  Report Type: Report from Study
  Country: CA (occurrence: CA)
  Receive Date: 20170417
  Receipt Date: 20170613
  Transmission Date: 20170830
  Serious: Yes (Life-Threatening, Other)
  Sender: FDA-Public Use
  Company Number: CA-B.I. PHARMACEUTICALS,INC./RIDGEFIELD-2017-BI-021254

PATIENT
  Age: 61 Year
  Sex: Male
  Weight: 115.4 kg

DRUGS (17)
  1. PLACEBO [Suspect]
     Active Substance: UNSPECIFIED INGREDIENT
     Indication: PLEURAL MESOTHELIOMA MALIGNANT
     Route: 048
     Dates: start: 20170111
  2. VITAMIN B12 [Concomitant]
     Active Substance: CYANOCOBALAMIN
     Indication: ROUTINE HEALTH MAINTENANCE
     Route: 030
     Dates: start: 20170105
  3. ZOFRAN [Concomitant]
     Active Substance: ONDANSETRON HYDROCHLORIDE
     Indication: NAUSEA
     Dosage: DAILY DOSE: 5 MG TWICE DAILY PRN
     Route: 065
     Dates: start: 20170313
  4. DECADRON [Concomitant]
     Active Substance: DEXAMETHASONE
     Dosage: 4 MG TWICE DAILY FOR 3 DAYS BEFORE CHEMO
     Route: 048
     Dates: start: 20170109, end: 20170425
  5. MAXERAN [Concomitant]
     Active Substance: METOCLOPRAMIDE HYDROCHLORIDE
     Indication: NAUSEA
     Dosage: DAILY DOSE: 10 MG EVERY 6 HOURS AS NEEDED
     Route: 048
     Dates: start: 20170110
  6. FOLIC ACID. [Concomitant]
     Active Substance: FOLIC ACID
     Indication: SUPPLEMENTATION THERAPY
     Route: 048
     Dates: start: 20170120
  7. CISPLATIN. [Suspect]
     Active Substance: CISPLATIN
     Indication: PLEURAL MESOTHELIOMA MALIGNANT
     Route: 065
  8. CELEBREX [Concomitant]
     Active Substance: CELECOXIB
     Indication: ARTHRITIS
     Route: 048
     Dates: start: 20161001
  9. MULTIVITAMIN [Concomitant]
     Active Substance: VITAMINS
     Indication: ROUTINE HEALTH MAINTENANCE
     Route: 048
     Dates: start: 20120101
  10. OXAZEPAM. [Concomitant]
     Active Substance: OXAZEPAM
     Indication: INSOMNIA
     Route: 048
     Dates: start: 20170131
  11. BACLOFEN. [Concomitant]
     Active Substance: BACLOFEN
     Indication: HICCUPS
     Dosage: DAILY DOSE: 10 MG THREE TIMES DAILY AS NEEDED
     Route: 048
     Dates: start: 20170112
  12. VENTOLIN [Concomitant]
     Active Substance: ALBUTEROL SULFATE
     Indication: DYSPNOEA
     Route: 065
     Dates: start: 20170227
  13. TECTA [Concomitant]
     Active Substance: PANTOPRAZOLE MAGNESIUM
     Indication: ABDOMINAL PAIN UPPER
     Route: 048
     Dates: start: 20161001
  14. TECTA [Concomitant]
     Active Substance: PANTOPRAZOLE MAGNESIUM
     Indication: DYSPEPSIA
  15. VITAMIN B12 [Concomitant]
     Active Substance: CYANOCOBALAMIN
     Indication: DRUG THERAPY
     Route: 048
     Dates: start: 20160101, end: 20170109
  16. PEMETREXED. [Suspect]
     Active Substance: PEMETREXED
     Indication: PLEURAL MESOTHELIOMA MALIGNANT
     Route: 065
  17. DECADRON [Concomitant]
     Active Substance: DEXAMETHASONE
     Indication: NAUSEA
     Dosage: POST CHEMO MORNING DAY 3-4
     Route: 048
     Dates: start: 20170112, end: 20170425

REACTIONS (2)
  - Pulmonary embolism [Not Recovered/Not Resolved]
  - Malignant pleural effusion [Not Recovered/Not Resolved]

NARRATIVE: CASE EVENT DATE: 20170217
